FAERS Safety Report 25643746 (Version 2)
Quarter: 2025Q3

REPORT INFORMATION
  Report Type: Spontaneous
  Country: BR (occurrence: BR)
  Receive Date: 20250805
  Receipt Date: 20250909
  Transmission Date: 20251020
  Serious: Yes (Other)
  Sender: SANDOZ
  Company Number: BR-002147023-NVSC2024BR233773

PATIENT
  Age: 69 Year
  Sex: Female

DRUGS (5)
  1. AMOXICILLIN [Suspect]
     Active Substance: AMOXICILLIN
     Indication: Product used for unknown indication
     Route: 065
  2. KISQALI [Suspect]
     Active Substance: RIBOCICLIB SUCCINATE
     Route: 065
  3. KISQALI [Suspect]
     Active Substance: RIBOCICLIB SUCCINATE
     Dosage: 3 DOSAGE FORM, QD (OTHER)
     Route: 065
     Dates: start: 20250901
  4. KISQALI [Suspect]
     Active Substance: RIBOCICLIB SUCCINATE
     Route: 065
     Dates: start: 20250103
  5. KISQALI [Suspect]
     Active Substance: RIBOCICLIB SUCCINATE
     Indication: Product used for unknown indication
     Route: 065

REACTIONS (33)
  - Asphyxia [Not Recovered/Not Resolved]
  - Pneumonia [Recovered/Resolved]
  - Haematochezia [Unknown]
  - Diabetes mellitus [Unknown]
  - Feeling abnormal [Not Recovered/Not Resolved]
  - Throat tightness [Not Recovered/Not Resolved]
  - Secretion discharge [Not Recovered/Not Resolved]
  - Catarrh [Not Recovered/Not Resolved]
  - Amnesia [Not Recovered/Not Resolved]
  - Sleep disorder [Not Recovered/Not Resolved]
  - Oral administration complication [Not Recovered/Not Resolved]
  - Dyspnoea [Recovering/Resolving]
  - Emotional disorder [Unknown]
  - Memory impairment [Unknown]
  - Retching [Unknown]
  - Oropharyngeal pain [Unknown]
  - Ear pain [Unknown]
  - Influenza [Unknown]
  - Malaise [Recovered/Resolved]
  - Nasopharyngitis [Unknown]
  - Sinusitis [Unknown]
  - Facial pain [Unknown]
  - Ear discomfort [Unknown]
  - Oropharyngeal discomfort [Unknown]
  - Nervousness [Unknown]
  - Decreased appetite [Unknown]
  - Abdominal discomfort [Unknown]
  - Aphthous ulcer [Unknown]
  - Chills [Unknown]
  - Pyrexia [Recovered/Resolved]
  - Cough [Recovering/Resolving]
  - Anaemia [Unknown]
  - Drug ineffective [Unknown]

NARRATIVE: CASE EVENT DATE: 20241101
